FAERS Safety Report 15608366 (Version 1)
Quarter: 2018Q4

REPORT INFORMATION
  Report Type: Spontaneous
  Country: US (occurrence: US)
  Receive Date: 20181112
  Receipt Date: 20181112
  Transmission Date: 20190205
  Serious: Yes (Hospitalization)
  Sender: FDA-Public Use
  Company Number: None

PATIENT
  Age: 61 Year
  Sex: Female

DRUGS (10)
  1. IRBESARTAN. [Concomitant]
     Active Substance: IRBESARTAN
  2. AVAPRO [Concomitant]
     Active Substance: IRBESARTAN
  3. EZETIMBE [Concomitant]
     Active Substance: EZETIMIBE
  4. FAMOTIDINE. [Concomitant]
     Active Substance: FAMOTIDINE
  5. METHYLPRED [Concomitant]
     Active Substance: METHYLPREDNISOLONE
  6. ELIQUIS [Concomitant]
     Active Substance: APIXABAN
  7. PANTOPRAZOLE [Concomitant]
     Active Substance: PANTOPRAZOLE
  8. AMLODIPINE [Concomitant]
     Active Substance: AMLODIPINE BESYLATE
  9. NORVASC [Concomitant]
     Active Substance: AMLODIPINE BESYLATE
  10. HUMIRA [Suspect]
     Active Substance: ADALIMUMAB
     Indication: RHEUMATOID ARTHRITIS
     Dosage: ?          OTHER FREQUENCY:EVERY 14 DAYS;?
     Route: 058
     Dates: start: 20180818

REACTIONS (2)
  - Pulmonary embolism [None]
  - Urinary tract infection [None]

NARRATIVE: CASE EVENT DATE: 20180822
